FAERS Safety Report 24446989 (Version 1)
Quarter: 2024Q4

REPORT INFORMATION
  Report Type: Spontaneous
  Country: US (occurrence: US)
  Receive Date: 20241016
  Receipt Date: 20241016
  Transmission Date: 20250115
  Serious: No
  Sender: MYLAN
  Company Number: US-MYLANLABS-2024M1091807

PATIENT
  Age: 83 Year
  Sex: Male

DRUGS (4)
  1. LIPITOR [Suspect]
     Active Substance: ATORVASTATIN CALCIUM
     Indication: Product used for unknown indication
     Dosage: 5 MILLIGRAM, QD (0.5 TABLETS DAILY))
     Route: 048
     Dates: start: 20240312, end: 20240930
  2. LIPITOR [Suspect]
     Active Substance: ATORVASTATIN CALCIUM
     Dosage: 5 MILLIGRAM, HS (0.5 TABLET AT BEDTIME)
     Route: 048
     Dates: start: 20240930
  3. EFFEXOR XR EXTENDED-RELEASE [Suspect]
     Active Substance: VENLAFAXINE HYDROCHLORIDE
     Indication: Product used for unknown indication
     Dosage: 150 MILLIGRAM, QD (2 CAPSULES)
     Route: 048
     Dates: start: 20240725
  4. EFFEXOR XR EXTENDED-RELEASE [Suspect]
     Active Substance: VENLAFAXINE HYDROCHLORIDE
     Indication: Product used for unknown indication
     Dosage: UNK (TOTAL DAILY DOSE OF 112.5 MG)
     Route: 048
     Dates: start: 20240725

REACTIONS (1)
  - Wrong technique in product usage process [Unknown]

NARRATIVE: CASE EVENT DATE: 20240312
